FAERS Safety Report 6900542-0 (Version None)
Quarter: 2010Q3

REPORT INFORMATION
  Report Type: 
  Country: None (occurrence: None)
  Receive Date: 20100803
  Receipt Date: 20100727
  Transmission Date: 20110219
  Serious: Yes (Congenital Anomaly)
  Sender: FDA-Public Use
  Company Number: DK-TEVA-243156ISR

PATIENT
  Sex: Female

DRUGS (2)
  1. MIRTAZAPINE [Suspect]
     Route: 064
  2. VENLAFAXINE [Concomitant]
     Route: 064

REACTIONS (2)
  - CLEFT LIP [None]
  - CLEFT PALATE [None]
